FAERS Safety Report 18410584 (Version 3)
Quarter: 2020Q4

REPORT INFORMATION
  Report Type: Report from Study
  Country: US (occurrence: US)
  Receive Date: 20201021
  Receipt Date: 20201120
  Transmission Date: 20210114
  Serious: Yes (Other)
  Sender: FDA-Public Use
  Company Number: US-TEVA-2020-US-1840084

PATIENT
  Sex: Female

DRUGS (1)
  1. CLOZAPINE TEVA [Suspect]
     Active Substance: CLOZAPINE
     Route: 048

REACTIONS (2)
  - Neutrophil count abnormal [Unknown]
  - Granulocytopenia [Unknown]
